FAERS Safety Report 7834624-6 (Version None)
Quarter: 2011Q4

REPORT INFORMATION
  Report Type: 
  Country: None (occurrence: None)
  Receive Date: 20111024
  Receipt Date: 20100929
  Transmission Date: 20120403
  Serious: No
  Sender: FDA-Public Use
  Company Number: US-BAUSCH-2010BL005510

PATIENT
  Age: 73 Year
  Sex: Female
  Weight: 81 kg

DRUGS (2)
  1. CIPROFLOXACIN [Suspect]
     Indication: EAR INFECTION
     Route: 001
  2. NEOMYCIN AND POLYMYXIN B SULFATES AND HYDROCORT OTIC SUS USP [Suspect]
     Indication: EAR INFECTION
     Route: 001
     Dates: start: 20100811, end: 20100814

REACTIONS (1)
  - MEDICATION RESIDUE [None]
